FAERS Safety Report 25645353 (Version 1)
Quarter: 2025Q3

REPORT INFORMATION
  Report Type: Spontaneous
  Country: EU (occurrence: EU)
  Receive Date: 20250805
  Receipt Date: 20250805
  Transmission Date: 20251021
  Serious: Yes (Other)
  Sender: ASTELLAS
  Company Number: EU-ASTELLAS-2025-AER-042432

PATIENT
  Age: 70 Year
  Sex: Male
  Weight: 64.0 kg

DRUGS (5)
  1. CRESEMBA [Suspect]
     Active Substance: ISAVUCONAZONIUM SULFATE
     Indication: Aspergillus infection
     Route: 065
     Dates: start: 20250521, end: 20250624
  2. CRESEMBA [Suspect]
     Active Substance: ISAVUCONAZONIUM SULFATE
     Indication: Vascular graft infection
  3. CUBICIN [Concomitant]
     Active Substance: DAPTOMYCIN
     Indication: Vascular device infection
     Route: 065
     Dates: start: 20250514, end: 20250609
  4. CEFTRIAXONE SODIUM [Concomitant]
     Active Substance: CEFTRIAXONE SODIUM
     Indication: Vascular device infection
     Route: 065
     Dates: start: 20250509, end: 20250610
  5. DALBAVANCIN HYDROCHLORIDE [Concomitant]
     Active Substance: DALBAVANCIN HYDROCHLORIDE
     Indication: Vascular device infection
     Route: 065
     Dates: start: 20250612, end: 20250612

REACTIONS (2)
  - Eosinophilia [Recovered/Resolved]
  - Off label use [Unknown]

NARRATIVE: CASE EVENT DATE: 20250612
